FAERS Safety Report 11009477 (Version 1)
Quarter: 2015Q2

REPORT INFORMATION
  Report Type: Spontaneous
  Country: US (occurrence: None)
  Receive Date: 20150409
  Receipt Date: 20150409
  Transmission Date: 20150821
  Serious: Yes (Life-Threatening, Hospitalization)
  Sender: FDA-Public Use
  Company Number: None

PATIENT
  Age: 86 Year
  Sex: Male

DRUGS (1)
  1. EXPAREL [Suspect]
     Active Substance: BUPIVACAINE
     Indication: PROCEDURAL PAIN
     Dosage: INJECTED INTO SPINAL AREA
     Dates: start: 20150212

REACTIONS (7)
  - Subarachnoid haemorrhage [None]
  - Subdural haemorrhage [None]
  - Hearing impaired [None]
  - Cardiotoxicity [None]
  - Lethargy [None]
  - Seizure [None]
  - Memory impairment [None]

NARRATIVE: CASE EVENT DATE: 20150212
